FAERS Safety Report 6976746-8 (Version None)
Quarter: 2010Q3

REPORT INFORMATION
  Report Type: 
  Country: None (occurrence: None)
  Receive Date: 20100910
  Receipt Date: 20100909
  Transmission Date: 20110219
  Serious: Yes (Other)
  Sender: FDA-Public Use
  Company Number: A0880493A

PATIENT
  Age: 46 Year
  Sex: Female

DRUGS (1)
  1. ALLI [Suspect]
     Route: 048

REACTIONS (8)
  - DRUG ADMINISTRATION ERROR [None]
  - EXPIRED DRUG ADMINISTERED [None]
  - GASTRIC DISORDER [None]
  - HAEMATEMESIS [None]
  - NAUSEA [None]
  - OROPHARYNGEAL PAIN [None]
  - TREATMENT NONCOMPLIANCE [None]
  - VOMITING [None]
